FAERS Safety Report 4944750-7 (Version None)
Quarter: 2006Q1

REPORT INFORMATION
  Report Type: 
  Country: None (occurrence: None)
  Receive Date: 20060113
  Receipt Date: 20050110
  Transmission Date: 20060701
  Serious: Yes (Other)
  Sender: FDA-Public Use
  Company Number: HQWYE213317JUL04

PATIENT
  Age: 61 Year
  Sex: Female
  Weight: 82.63 kg

DRUGS (5)
  1. PREMPRO [Suspect]
     Indication: POSTMENOPAUSE
     Dosage: ORAL
     Route: 048
     Dates: start: 20000501
  2. ESTRACE [Suspect]
     Indication: POSTMENOPAUSE
     Dosage: ORAL
     Route: 048
     Dates: start: 19960614
  3. ESTROGEN NOS (ESTROGEN NOS, ) [Suspect]
     Indication: POSTMENOPAUSE
     Dosage: 0.625MG/ORAL
     Route: 048
     Dates: start: 19881101
  4. MEDROXYPROGESTERONE [Suspect]
     Indication: POSTMENOPAUSE
     Dosage: 10 MG/ORAL
     Route: 048
     Dates: start: 19881101
  5. PROVERA [Suspect]
     Indication: POSTMENOPAUSE
     Dosage: ORAL
     Route: 048
     Dates: start: 19960414, end: 20000401

REACTIONS (3)
  - BREAST CANCER [None]
  - BREAST PAIN [None]
  - BREAST TENDERNESS [None]
